FAERS Safety Report 8835971 (Version 1)
Quarter: 2012Q4

REPORT INFORMATION
  Report Type: 
  Country: US (occurrence: US)
  Receive Date: 20121011
  Receipt Date: 20121011
  Transmission Date: 20130627
  Serious: No
  Sender: FDA-Public Use
  Company Number: US-PFIZER INC-2012250933

PATIENT
  Sex: Female

DRUGS (2)
  1. CHANTIX [Suspect]
     Dosage: UNK
     Dates: start: 201209
  2. CHANTIX [Suspect]
     Dosage: 1 mg, 1x/day

REACTIONS (2)
  - Malaise [Unknown]
  - Nausea [Unknown]
